FAERS Safety Report 25358914 (Version 1)
Quarter: 2025Q2

REPORT INFORMATION
  Report Type: Spontaneous
  Country: CN (occurrence: CN)
  Receive Date: 20250526
  Receipt Date: 20250526
  Transmission Date: 20250717
  Serious: Yes (Other)
  Sender: MERCK SHARP & DOHME LLC
  Company Number: CN-009507513-2288903

PATIENT
  Age: 47 Year
  Sex: Female
  Weight: 55 kg

DRUGS (3)
  1. CILASTATIN SODIUM\IMIPENEM [Suspect]
     Active Substance: CILASTATIN SODIUM\IMIPENEM
     Indication: Pneumonia
     Route: 041
     Dates: start: 20250513, end: 20250516
  2. ACYCLOVIR [Suspect]
     Active Substance: ACYCLOVIR
     Indication: Pneumonia
     Dosage: LOT # 25110172
     Route: 041
     Dates: start: 20250513, end: 20250515
  3. SULFAMETHOXAZOLE [Suspect]
     Active Substance: SULFAMETHOXAZOLE
     Indication: Pneumonia
     Route: 048
     Dates: start: 20250513, end: 20250515

REACTIONS (1)
  - Drug-induced liver injury [Recovering/Resolving]

NARRATIVE: CASE EVENT DATE: 20250515
